FAERS Safety Report 9855621 (Version 3)
Quarter: 2014Q3

REPORT INFORMATION
  Report Type: Spontaneous
  Country: US (occurrence: US)
  Receive Date: 20140130
  Receipt Date: 20140909
  Transmission Date: 20150326
  Serious: Yes (Hospitalization)
  Sender: FDA-Public Use
  Company Number: US-BAYER-2014-012488

PATIENT
  Age: 29 Year
  Sex: Female
  Weight: 72.56 kg

DRUGS (2)
  1. OXYBUTYNIN [Concomitant]
     Active Substance: OXYBUTYNIN
     Indication: URINARY TRACT PAIN
     Dosage: 5 MG, TID
     Dates: start: 20120828
  2. MIRENA [Suspect]
     Active Substance: LEVONORGESTREL
     Indication: CONTRACEPTION
     Dosage: 20 MCG/24HR, CONT
     Route: 015
     Dates: start: 20090127, end: 20130109

REACTIONS (7)
  - Procedural pain [None]
  - Injury [None]
  - Uterine perforation [None]
  - Off label use [None]
  - Post procedural discomfort [None]
  - Medical device pain [None]
  - Device issue [None]

NARRATIVE: CASE EVENT DATE: 2009
